FAERS Safety Report 5010005-8 (Version None)
Quarter: 2006Q2

REPORT INFORMATION
  Report Type: 
  Country: None (occurrence: None)
  Receive Date: 20060522
  Receipt Date: 20060511
  Transmission Date: 20061013
  Serious: Yes (Death, Hospitalization)
  Sender: FDA-Public Use
  Company Number: 2006-DE-02004GD

PATIENT
  Age: 13 Year
  Sex: Female

DRUGS (3)
  1. SALBUTAMOL (SALBUTAMOL) [Suspect]
     Indication: DYSPNOEA
     Dosage: IH
     Route: 055
  2. PREDNISONE TAB [Suspect]
     Indication: DYSPNOEA
  3. AMOXICILLIN [Suspect]
     Indication: DYSPNOEA

REACTIONS (16)
  - ASTHMA [None]
  - BLOOD IMMUNOGLOBULIN E INCREASED [None]
  - BRADYCARDIA [None]
  - BRAIN DEATH [None]
  - CARDIAC DISORDER [None]
  - DRUG INEFFECTIVE [None]
  - DYSPNOEA [None]
  - EOSINOPHIL COUNT INCREASED [None]
  - FALL [None]
  - LUNG HYPERINFLATION [None]
  - METABOLIC ACIDOSIS [None]
  - OBSTRUCTIVE AIRWAYS DISORDER [None]
  - PROCEDURAL COMPLICATION [None]
  - PULSE ABSENT [None]
  - RESPIRATORY ARREST [None]
  - VENTRICULAR FIBRILLATION [None]
